FAERS Safety Report 7490291-5 (Version None)
Quarter: 2011Q2

REPORT INFORMATION
  Report Type: 
  Country: None (occurrence: None)
  Receive Date: 20110519
  Receipt Date: 20100824
  Transmission Date: 20111010
  Serious: Yes (Other)
  Sender: FDA-Public Use
  Company Number: US-BRISTOL-MYERS SQUIBB COMPANY-15214968

PATIENT
  Age: 80 Year
  Sex: Male

DRUGS (3)
  1. LANTUS [Concomitant]
  2. BARACLUDE [Suspect]
  3. HUMALOG [Concomitant]

REACTIONS (1)
  - VIRAL LOAD INCREASED [None]
